FAERS Safety Report 6203253-2 (Version None)
Quarter: 2009Q2

REPORT INFORMATION
  Report Type: 
  Country: None (occurrence: None)
  Receive Date: 20090527
  Receipt Date: 20090521
  Transmission Date: 20091009
  Serious: Yes (Life-Threatening, Hospitalization)
  Sender: FDA-Public Use
  Company Number: NL-ROCHE-634389

PATIENT
  Sex: Male
  Weight: 62 kg

DRUGS (4)
  1. RIVOTRIL [Suspect]
     Indication: RESTLESSNESS
     Route: 048
     Dates: start: 20090417, end: 20090501
  2. PARNATE [Suspect]
     Route: 048
     Dates: start: 20090429, end: 20090501
  3. ZYPREXA [Suspect]
     Route: 048
     Dates: start: 20080101, end: 20090430
  4. PRIADEL [Suspect]
     Route: 048
     Dates: start: 19800101, end: 20090430

REACTIONS (1)
  - SEROTONIN SYNDROME [None]
